FAERS Safety Report 25986913 (Version 1)
Quarter: 2025Q4

REPORT INFORMATION
  Report Type: Spontaneous
  Country: EU (occurrence: EU)
  Receive Date: 20251102
  Receipt Date: 20251102
  Transmission Date: 20260118
  Serious: Yes (Hospitalization)
  Sender: TAKEDA
  Company Number: None

PATIENT
  Age: 63 Year
  Sex: Female

DRUGS (13)
  1. BRINTELLIX [Suspect]
     Active Substance: VORTIOXETINE HYDROBROMIDE
     Indication: Adjustment disorder with depressed mood
     Dosage: 10 MILLIGRAM
  2. ACETAMINOPHEN\TRAMADOL [Suspect]
     Active Substance: ACETAMINOPHEN\TRAMADOL
     Indication: Back pain
     Dosage: 1 DOSAGE FORM, Q12H
     Dates: start: 20240805
  3. ACETAMINOPHEN [Concomitant]
     Active Substance: ACETAMINOPHEN
     Indication: Renal colic
     Dosage: 1000 MILLIGRAM
  4. ALDACTONE [Concomitant]
     Active Substance: SPIRONOLACTONE
     Indication: Dysuria
     Dosage: 100 MILLIGRAM
  5. CLOBEX [Concomitant]
     Active Substance: CLOBETASOL PROPIONATE
     Indication: Systemic lupus erythematosus
     Dosage: 7.5 MILLIGRAM, QD
     Route: 061
     Dates: start: 20181016
  6. Famotidina Cinfa [Concomitant]
     Indication: Hepatic cirrhosis
     Dosage: 20 MILLIGRAM
  7. CALCIFEDIOL [Concomitant]
     Active Substance: CALCIFEDIOL
     Indication: Dysuria
     Dosage: 16000 INTERNATIONAL UNIT, 1/WEEK
     Dates: start: 20250426
  8. Propranolol kern [Concomitant]
     Indication: Hepatic cirrhosis
     Dosage: 10 MILLIGRAM
  9. FERROUS SULFATE [Concomitant]
     Active Substance: FERROUS SULFATE
     Indication: Renal colic
     Dosage: 105 MILLIGRAM, QD
     Dates: start: 20250426
  10. ZOLPIDEM TARTRATE [Concomitant]
     Active Substance: ZOLPIDEM TARTRATE
     Indication: Insomnia
     Dosage: 10 MILLIGRAM, QD
     Dates: start: 20250827
  11. ELIDEL [Concomitant]
     Active Substance: PIMECROLIMUS
     Indication: Systemic lupus erythematosus
     Dosage: UNK UNK, QD
     Route: 061
     Dates: start: 20250325
  12. FUROSEMIDE [Concomitant]
     Active Substance: FUROSEMIDE
     Indication: Cervical dysplasia
     Dosage: 40 MILLIGRAM
  13. RIFAXIMIN [Concomitant]
     Active Substance: RIFAXIMIN
     Indication: Encephalopathy
     Dosage: 400 MILLIGRAM, Q8HR
     Dates: start: 20250819

REACTIONS (3)
  - Disorientation [Recovering/Resolving]
  - Dizziness [Recovering/Resolving]
  - Confusional state [Recovering/Resolving]

NARRATIVE: CASE EVENT DATE: 20251005
